FAERS Safety Report 23636627 (Version 1)
Quarter: 2024Q1

REPORT INFORMATION
  Report Type: Spontaneous
  Country: US (occurrence: US)
  Receive Date: 20240315
  Receipt Date: 20240315
  Transmission Date: 20240410
  Serious: Yes (Death, Other)
  Sender: FDA-Public Use
  Company Number: US-AMGEN-USASP2024049654

PATIENT
  Age: 14 Year
  Sex: Male

DRUGS (15)
  1. INFLIXIMAB [Suspect]
     Active Substance: INFLIXIMAB
     Indication: Acute graft versus host disease in intestine
     Dosage: UNK
     Route: 065
  2. INFLIXIMAB [Suspect]
     Active Substance: INFLIXIMAB
     Indication: Acute graft versus host disease in skin
  3. INFLIXIMAB [Suspect]
     Active Substance: INFLIXIMAB
     Indication: Acute graft versus host disease in liver
  4. BEGELOMAB [Concomitant]
     Active Substance: BEGELOMAB
     Indication: Acute graft versus host disease in intestine
     Dosage: 2.7 MILLIGRAM/SQ. METER, QD (ON DAYS 1, 2, 3, 4, 5, 10, 14, 17, 21, 24, AND 28, TOTALING 11 DOSES)
     Route: 042
  5. BEGELOMAB [Concomitant]
     Active Substance: BEGELOMAB
     Indication: Acute graft versus host disease in liver
  6. BEGELOMAB [Concomitant]
     Active Substance: BEGELOMAB
     Indication: Acute graft versus host disease in skin
  7. CYCLOSPORINE [Concomitant]
     Active Substance: CYCLOSPORINE
     Indication: Acute graft versus host disease in intestine
     Route: 065
  8. CYCLOSPORINE [Concomitant]
     Active Substance: CYCLOSPORINE
     Indication: Acute graft versus host disease in liver
  9. CYCLOSPORINE [Concomitant]
     Active Substance: CYCLOSPORINE
     Indication: Acute graft versus host disease in skin
  10. BASILIXIMAB [Concomitant]
     Active Substance: BASILIXIMAB
     Indication: Acute graft versus host disease in intestine
     Route: 065
  11. BASILIXIMAB [Concomitant]
     Active Substance: BASILIXIMAB
     Indication: Acute graft versus host disease in liver
  12. BASILIXIMAB [Concomitant]
     Active Substance: BASILIXIMAB
     Indication: Acute graft versus host disease in skin
  13. RUXOLITINIB [Concomitant]
     Active Substance: RUXOLITINIB
     Indication: Acute graft versus host disease in intestine
     Route: 065
  14. RUXOLITINIB [Concomitant]
     Active Substance: RUXOLITINIB
     Indication: Acute graft versus host disease in skin
  15. RUXOLITINIB [Concomitant]
     Active Substance: RUXOLITINIB
     Indication: Acute graft versus host disease in liver

REACTIONS (10)
  - Death [Fatal]
  - Cystitis haemorrhagic [Unknown]
  - Staphylococcal bacteraemia [Unknown]
  - Enterococcal bacteraemia [Unknown]
  - Venoocclusive disease [Unknown]
  - Off label use [Unknown]
  - Fungal infection [Unknown]
  - Cytomegalovirus infection [Unknown]
  - BK virus infection [Unknown]
  - Respiratory syncytial virus infection [Unknown]
